FAERS Safety Report 19001103 (Version 1)
Quarter: 2021Q1

REPORT INFORMATION
  Report Type: Spontaneous
  Country: US (occurrence: US)
  Receive Date: 20210311
  Receipt Date: 20210311
  Transmission Date: 20210420
  Serious: Yes (Hospitalization, Other)
  Sender: FDA-Public Use
  Company Number: None

PATIENT
  Age: 5 Year
  Sex: Female
  Weight: 30.6 kg

DRUGS (1)
  1. HYDROXYZINE [Suspect]
     Active Substance: HYDROXYZINE HYDROCHLORIDE
     Indication: ECZEMA
     Dates: start: 20210306, end: 20210309

REACTIONS (11)
  - Gait disturbance [None]
  - Tremor [None]
  - Chest pain [None]
  - Product taste abnormal [None]
  - Erythema [None]
  - Pain in extremity [None]
  - Product colour issue [None]
  - Headache [None]
  - Irritability [None]
  - Manufacturing issue [None]
  - Crying [None]

NARRATIVE: CASE EVENT DATE: 20210306
